FAERS Safety Report 4830372-5 (Version None)
Quarter: 2005Q4

REPORT INFORMATION
  Report Type: 
  Country: None (occurrence: None)
  Receive Date: 20051117
  Receipt Date: 20051019
  Transmission Date: 20060501
  Serious: Yes (Congenital Anomaly)
  Sender: FDA-Public Use
  Company Number: 200519304GDDC

PATIENT
  Sex: Male

DRUGS (4)
  1. LANTUS [Suspect]
     Route: 064
     Dates: start: 20050810, end: 20050929
  2. HUMALOG [Concomitant]
     Dosage: DOSE UNIT: UNITS
     Route: 064
     Dates: start: 20050315
  3. ROSIGLITAZONE [Concomitant]
     Route: 064
     Dates: end: 20050315
  4. GLICLAZIDE [Concomitant]
     Route: 064
     Dates: end: 20050315

REACTIONS (3)
  - CAESAREAN SECTION [None]
  - DRUG EXPOSURE DURING PREGNANCY [None]
  - HEART DISEASE CONGENITAL [None]
